FAERS Safety Report 9571417 (Version 1)
Quarter: 2013Q1

REPORT INFORMATION
  Report Type: Spontaneous
  Country: US (occurrence: None)
  Receive Date: 20120525
  Receipt Date: 20120525
  Transmission Date: 20140127
  Serious: No
  Sender: FDA-Public Use
  Company Number: 348747

PATIENT
  Sex: Male

DRUGS (2)
  1. LEVEMIR (INSULIN DETEMIR) [Suspect]
     Indication: DIABETES MELLITUS
  2. VICTOZA(LIRAGLUTIDE) SOLUTION FOR INJECTION, 6MG/ML [Suspect]
     Indication: PRODUCT USED FOR UNKNOWN INDICATION
     Route: 058
     Dates: end: 2011

REACTIONS (2)
  - Decreased appetite [None]
  - Weight decreased [None]
